FAERS Safety Report 25674433 (Version 1)
Quarter: 2025Q3

REPORT INFORMATION
  Report Type: Spontaneous
  Country: US (occurrence: US)
  Receive Date: 20250813
  Receipt Date: 20250813
  Transmission Date: 20251020
  Serious: No
  Sender: SUNOVION
  Company Number: US-SUMITOMO PHARMA SWITZERLAND GMBH-2024MYSCI0700785

PATIENT
  Age: 67 Year
  Sex: Male

DRUGS (13)
  1. ORGOVYX [Suspect]
     Active Substance: RELUGOLIX
     Indication: Prostate cancer
     Dosage: 360 MG, SINGLE
     Route: 048
  2. ORGOVYX [Suspect]
     Active Substance: RELUGOLIX
     Dosage: 120 MG, QD
     Route: 048
  3. ERLEADA [Suspect]
     Active Substance: APALUTAMIDE
     Indication: Product used for unknown indication
     Dosage: 240 MG, QD
     Dates: end: 20250523
  4. ERLEADA [Suspect]
     Active Substance: APALUTAMIDE
     Dosage: 120 MG, QD
  5. CHLORTHALIDONE [Concomitant]
     Active Substance: CHLORTHALIDONE
  6. DELSYM [Concomitant]
     Active Substance: DEXTROMETHORPHAN
  7. ELIQUIS [Concomitant]
     Active Substance: APIXABAN
  8. LISINOPRIL [Concomitant]
     Active Substance: LISINOPRIL
  9. ULORIC [Concomitant]
     Active Substance: FEBUXOSTAT
  10. METOPROLOL SUCCINATE [Concomitant]
     Active Substance: METOPROLOL SUCCINATE
  11. CARVEDILOL [Concomitant]
     Active Substance: CARVEDILOL
  12. AMLODIPINE BESYLATE [Concomitant]
     Active Substance: AMLODIPINE BESYLATE
  13. CHEST CONGESTION RELIEF DM [Concomitant]
     Active Substance: DEXTROMETHORPHAN HYDROBROMIDE\GUAIFENESIN

REACTIONS (12)
  - Amnesia [Unknown]
  - Quality of life decreased [Unknown]
  - Feeling abnormal [Unknown]
  - Muscle spasms [Unknown]
  - Ear haemorrhage [Unknown]
  - Rash [Unknown]
  - Nasopharyngitis [Unknown]
  - Hot flush [Unknown]
  - Fatigue [Not Recovered/Not Resolved]
  - Constipation [Unknown]
  - Depression [Unknown]
  - Hyperhidrosis [Unknown]
